FAERS Safety Report 10269721 (Version 6)
Quarter: 2014Q3

REPORT INFORMATION
  Report Type: Spontaneous
  Country: US (occurrence: None)
  Receive Date: 20140623
  Receipt Date: 20140729
  Transmission Date: 20150326
  Serious: Yes (Life-Threatening, Other)
  Sender: FDA-Public Use
  Company Number: 003-189

PATIENT
  Age: 50 Year
  Sex: Male

DRUGS (1)
  1. CROFAB [Suspect]
     Active Substance: CROTALIDAE POLYVALENT IMMUNE FAB (OVINE)
     Indication: SNAKE BITE
     Dosage: 12 VIALS TOTAL
     Dates: start: 20140603, end: 20140604

REACTIONS (27)
  - Contusion [None]
  - Pyrexia [None]
  - Neuralgia [None]
  - Joint stiffness [None]
  - Decreased appetite [None]
  - Tenderness [None]
  - Skin fissures [None]
  - Injection site cellulitis [None]
  - Erythema [None]
  - Gait disturbance [None]
  - Local swelling [None]
  - Lung disorder [None]
  - Weight decreased [None]
  - Hyperaesthesia [None]
  - Pruritus [None]
  - Muscle tightness [None]
  - Vision blurred [None]
  - Peripheral swelling [None]
  - Lung hyperinflation [None]
  - Scar [None]
  - Skin exfoliation [None]
  - Cold sweat [None]
  - Fatigue [None]
  - Chest discomfort [None]
  - Chest pain [None]
  - Inflammation [None]
  - Oedema mouth [None]

NARRATIVE: CASE EVENT DATE: 20140604
